FAERS Safety Report 11655056 (Version 1)
Quarter: 2015Q4

REPORT INFORMATION
  Report Type: Spontaneous
  Country: JP (occurrence: JP)
  Receive Date: 20151023
  Receipt Date: 20151023
  Transmission Date: 20160304
  Serious: Yes (Other)
  Sender: FDA-Public Use
  Company Number: JP-PFIZER INC-2015352237

PATIENT
  Age: 7 Decade
  Sex: Male

DRUGS (1)
  1. TOVIAZ [Suspect]
     Active Substance: FESOTERODINE FUMARATE
     Dosage: UNK
     Route: 048

REACTIONS (4)
  - Vision blurred [Unknown]
  - Conjunctivitis [Unknown]
  - Intraocular pressure increased [Unknown]
  - Thirst [Recovered/Resolved]
